FAERS Safety Report 8926594 (Version 1)
Quarter: 2012Q4

REPORT INFORMATION
  Report Type: 
  Country: GB (occurrence: GB)
  Receive Date: 20121127
  Receipt Date: 20121127
  Transmission Date: 20130627
  Serious: Yes (Life-Threatening, Hospitalization, Disabling)
  Sender: FDA-Public Use
  Company Number: GB-TEVA-371689ISR

PATIENT
  Age: 82 Year
  Sex: Male
  Weight: 98.87 kg

DRUGS (15)
  1. AMIODARONE [Suspect]
     Indication: ISCHAEMIC CARDIOMYOPATHY
     Route: 048
     Dates: start: 1998, end: 201211
  2. ATORVASTATIN [Concomitant]
  3. EPLERENONE [Concomitant]
  4. IVABRADINE [Concomitant]
  5. LOSARTAN [Concomitant]
  6. ISOSORBIDE [Concomitant]
  7. SPIROLACTONE [Concomitant]
  8. ASPIRIN [Concomitant]
  9. OMEPRAZOLE [Concomitant]
  10. FUROSEMIDE [Concomitant]
  11. NICORANDIL [Concomitant]
  12. CITALOPRAM [Concomitant]
  13. CO-CODAMOL [Concomitant]
  14. TRAMADOL [Concomitant]
  15. BENDROFLUMETHIAZIDE [Concomitant]

REACTIONS (2)
  - Pulmonary fibrosis [Not Recovered/Not Resolved]
  - Medication error [Unknown]
